FAERS Safety Report 6055038-8 (Version None)
Quarter: 2009Q1

REPORT INFORMATION
  Report Type: 
  Country: None (occurrence: None)
  Receive Date: 20090122
  Receipt Date: 20090113
  Transmission Date: 20090719
  Serious: Yes (Hospitalization)
  Sender: FDA-Public Use
  Company Number: 2009AL000301

PATIENT
  Age: 53 Year
  Sex: Male

DRUGS (7)
  1. CITALOPRAM HYDROBROMIDE [Suspect]
     Indication: ANXIETY DISORDER
     Dosage: 20 MG;QD;PO
     Route: 048
     Dates: start: 19990101, end: 20081213
  2. IBUPROFEN [Concomitant]
  3. PEPTAC [Concomitant]
  4. SENNA [Concomitant]
  5. DIAZEPAM [Concomitant]
  6. ACETAMINOPHEN W/ CODEINE [Concomitant]
  7. LOTRIDERM [Concomitant]

REACTIONS (1)
  - PERFORATED ULCER [None]
